FAERS Safety Report 5867391-6 (Version None)
Quarter: 2008Q3

REPORT INFORMATION
  Report Type: 
  Country: None (occurrence: None)
  Receive Date: 20080902
  Receipt Date: 20080829
  Transmission Date: 20090109
  Serious: Yes (Hospitalization)
  Sender: FDA-Public Use
  Company Number: PHHO2000FR01858

PATIENT
  Sex: Male
  Weight: 71 kg

DRUGS (1)
  1. LESCOL MR LES01+ [Suspect]
     Dosage: 160 MG, QD
     Route: 048
     Dates: start: 19991026

REACTIONS (2)
  - CHOLECYSTECTOMY [None]
  - CHOLELITHIASIS [None]
